FAERS Safety Report 12333795 (Version 1)
Quarter: 2016Q2

REPORT INFORMATION
  Report Type: Spontaneous
  Country: SK (occurrence: SK)
  Receive Date: 20160504
  Receipt Date: 20160504
  Transmission Date: 20160815
  Serious: Yes (Life-Threatening, Hospitalization, Other)
  Sender: FDA-Public Use
  Company Number: SK-ROCHE-1749806

PATIENT
  Age: 53 Year
  Sex: Female

DRUGS (2)
  1. THEOPHYLLINE [Suspect]
     Active Substance: THEOPHYLLINE ANHYDROUS
     Indication: PRODUCT USED FOR UNKNOWN INDICATION
     Route: 065
  2. XOLAIR [Suspect]
     Active Substance: OMALIZUMAB
     Indication: ASTHMA
     Route: 065
     Dates: start: 20060602

REACTIONS (10)
  - Hypokalaemia [Not Recovered/Not Resolved]
  - Epilepsy [Not Recovered/Not Resolved]
  - Poisoning [Unknown]
  - Arrhythmia [Not Recovered/Not Resolved]
  - Syncope [Unknown]
  - Palpitations [Unknown]
  - Metabolic disorder [Not Recovered/Not Resolved]
  - Metabolic acidosis [Not Recovered/Not Resolved]
  - Haematemesis [Not Recovered/Not Resolved]
  - Fatigue [Unknown]

NARRATIVE: CASE EVENT DATE: 20160422
